FAERS Safety Report 6374039-3 (Version None)
Quarter: 2009Q3

REPORT INFORMATION
  Report Type: 
  Country: None (occurrence: None)
  Receive Date: 20090924
  Receipt Date: 20090709
  Transmission Date: 20100115
  Serious: No
  Sender: FDA-Public Use
  Company Number: US-ASTRAZENECA-2009UW18989

PATIENT
  Sex: Female

DRUGS (1)
  1. SEROQUEL [Suspect]
     Route: 048
     Dates: start: 20070701

REACTIONS (10)
  - ABDOMINAL PAIN [None]
  - DEHYDRATION [None]
  - HEADACHE [None]
  - MUSCLE RIGIDITY [None]
  - MUSCLE TWITCHING [None]
  - OROPHARYNGEAL PAIN [None]
  - PYREXIA [None]
  - TREMOR [None]
  - VIRAL INFECTION [None]
  - WEIGHT INCREASED [None]
